FAERS Safety Report 20668475 (Version 1)
Quarter: 2022Q2

REPORT INFORMATION
  Report Type: Spontaneous
  Country: US (occurrence: None)
  Receive Date: 20220401
  Receipt Date: 20220401
  Transmission Date: 20220720
  Serious: No
  Sender: FDA-Public Use
  Company Number: None

PATIENT
  Age: 30 Year
  Sex: Female
  Weight: 57.15 kg

DRUGS (1)
  1. NP THYROID [Suspect]
     Active Substance: LEVOTHYROXINE\LIOTHYRONINE
     Indication: Hypothyroidism
     Dosage: OTHER QUANTITY : 1 TABLET(S);?FREQUENCY : DAILY;?
     Route: 048
     Dates: start: 20220225

REACTIONS (7)
  - Condition aggravated [None]
  - Constipation [None]
  - Fatigue [None]
  - Joint swelling [None]
  - Swelling face [None]
  - Recalled product administered [None]
  - Product measured potency issue [None]

NARRATIVE: CASE EVENT DATE: 20220225
